FAERS Safety Report 11311424 (Version 1)
Quarter: 2015Q3

REPORT INFORMATION
  Report Type: Other
  Country: DE (occurrence: DE)
  Receive Date: 20150727
  Receipt Date: 20150727
  Transmission Date: 20151125
  Serious: Yes (Other)
  Sender: FDA-Public Use
  Company Number: DE-LUPIN PHARMACEUTICALS INC.-2015-02231

PATIENT
  Age: 34 Year
  Sex: Female
  Weight: 64 kg

DRUGS (6)
  1. TAVOR [Suspect]
     Active Substance: LORAZEPAM
     Indication: PANIC REACTION
     Dosage: 0.5 MG
     Route: 048
  2. FOLSAURE [Concomitant]
     Active Substance: FOLIC ACID
     Indication: PROPHYLAXIS OF NEURAL TUBE DEFECT
     Route: 048
  3. SERTRALINE [Suspect]
     Active Substance: SERTRALINE HYDROCHLORIDE
     Indication: ANXIETY
  4. SERTRALINE [Suspect]
     Active Substance: SERTRALINE HYDROCHLORIDE
     Indication: DEPRESSION
     Dosage: 150 MG
     Route: 048
  5. RISPERDAL [Suspect]
     Active Substance: RISPERIDONE
     Indication: PRODUCT USED FOR UNKNOWN INDICATION
     Dosage: 2 MG
     Route: 048
     Dates: start: 20140328
  6. TAVOR [Suspect]
     Active Substance: LORAZEPAM
     Dosage: DOSAGE BETWEEN 30 AND 75 MG
     Route: 064

REACTIONS (5)
  - Pleurisy [Unknown]
  - Suicide attempt [Unknown]
  - Premature rupture of membranes [Unknown]
  - Bronchitis [Unknown]
  - Exposure during pregnancy [Unknown]
